FAERS Safety Report 26204744 (Version 1)
Quarter: 2025Q4

REPORT INFORMATION
  Report Type: Spontaneous
  Country: EU (occurrence: EU)
  Receive Date: 20251227
  Receipt Date: 20251227
  Transmission Date: 20260117
  Serious: Yes (Life-Threatening, Hospitalization, Other)
  Sender: AUROBINDO
  Company Number: EU-MLMSERVICE-20251205-PI741133-00327-1

PATIENT
  Age: 27 Year

DRUGS (2)
  1. VALPROIC ACID [Suspect]
     Active Substance: VALPROIC ACID
     Indication: Product used for unknown indication
     Dosage: 19500 MILLIGRAM
     Route: 061
  2. PHENYTOIN [Suspect]
     Active Substance: PHENYTOIN
     Indication: Product used for unknown indication
     Dosage: 19700 MILLIGRAM
     Route: 061

REACTIONS (5)
  - Intentional self-injury [Recovering/Resolving]
  - Delirium [Recovering/Resolving]
  - Hypotension [Unknown]
  - Psychomotor hyperactivity [Recovering/Resolving]
  - Intentional overdose [Unknown]
